FAERS Safety Report 4708247-1 (Version None)
Quarter: 2005Q3

REPORT INFORMATION
  Report Type: 
  Country: None (occurrence: None)
  Receive Date: 20050707
  Receipt Date: 20050627
  Transmission Date: 20060218
  Serious: Yes (Hospitalization)
  Sender: FDA-Public Use
  Company Number: GB-JNJFOC-20050700024

PATIENT
  Age: 92 Year
  Sex: Female
  Weight: 68 kg

DRUGS (5)
  1. LOPERAMIDE [Suspect]
     Indication: DEPRESSION
     Route: 049
  2. AMILORIDE HCL AND HYDROCHLOROTHIAZIDE [Concomitant]
     Route: 049
  3. AMILORIDE HCL AND HYDROCHLOROTHIAZIDE [Concomitant]
     Route: 049
  4. TEMAZEPAM [Concomitant]
     Route: 049
  5. LORAZEPAM [Concomitant]
     Route: 049

REACTIONS (2)
  - NEUTROPENIA [None]
  - SEPSIS [None]
